FAERS Safety Report 20325996 (Version 1)
Quarter: 2022Q1

REPORT INFORMATION
  Report Type: Spontaneous
  Country: US (occurrence: US)
  Receive Date: 20220112
  Receipt Date: 20220112
  Transmission Date: 20220424
  Serious: No
  Sender: FDA-Public Use
  Company Number: US-ORGANON-O2201USA000599

PATIENT
  Age: 17 Year
  Sex: Male

DRUGS (1)
  1. PROPECIA [Suspect]
     Active Substance: FINASTERIDE
     Indication: Alopecia
     Dosage: 0.25MG/ONCE DAILY
     Route: 048
     Dates: start: 2021, end: 20220103

REACTIONS (5)
  - Sexual dysfunction [Unknown]
  - Anxiety [Unknown]
  - Depression [Unknown]
  - Wrong technique in product usage process [Unknown]
  - Incorrect dose administered [Unknown]
